FAERS Safety Report 6413589-8 (Version None)
Quarter: 2009Q4

REPORT INFORMATION
  Report Type: 
  Country: None (occurrence: None)
  Receive Date: 20091023
  Receipt Date: 20091023
  Transmission Date: 20100525
  Serious: Yes (Other)
  Sender: FDA-Public Use
  Company Number: None

PATIENT
  Sex: Female
  Weight: 31.7518 kg

DRUGS (5)
  1. ZYDIS 5 MG [Suspect]
     Indication: ANOREXIA NERVOSA
     Dosage: 5 MG QHS INJ
     Dates: start: 20090923, end: 20091004
  2. ZYDIS 5 MG [Suspect]
     Indication: ANOREXIA NERVOSA
     Dosage: 5 MG QHS INJ
     Dates: start: 20091005, end: 20091006
  3. BENADRYL [Concomitant]
  4. ZYRTEC [Concomitant]
  5. CORTICOSTEROIDS [Concomitant]

REACTIONS (3)
  - ANGIOEDEMA [None]
  - FACE OEDEMA [None]
  - RASH PRURITIC [None]
